FAERS Safety Report 4981177-6 (Version None)
Quarter: 2006Q2

REPORT INFORMATION
  Report Type: 
  Country: None (occurrence: None)
  Receive Date: 20060424
  Receipt Date: 20060413
  Transmission Date: 20061013
  Serious: Yes (Life-Threatening, Hospitalization)
  Sender: FDA-Public Use
  Company Number: JP-BRISTOL-MYERS SQUIBB COMPANY-13346747

PATIENT
  Age: 71 Year
  Sex: Female

DRUGS (2)
  1. PARAPLATIN [Suspect]
     Indication: OVARIAN CANCER
     Route: 042
     Dates: start: 20060410, end: 20060410
  2. DOCETAXEL [Concomitant]
     Route: 042
     Dates: start: 20060410, end: 20060410

REACTIONS (1)
  - CARDIAC ARREST [None]
